FAERS Safety Report 10249355 (Version 1)
Quarter: 2014Q2

REPORT INFORMATION
  Report Type: Spontaneous
  Country: US (occurrence: None)
  Receive Date: 20140619
  Receipt Date: 20140619
  Transmission Date: 20141212
  Serious: Yes (Other)
  Sender: FDA-Public Use
  Company Number: None

PATIENT
  Age: 23 Year
  Sex: Female
  Weight: 28.58 kg

DRUGS (1)
  1. INJECTAFER [Suspect]
     Indication: IRON DEFICIENCY ANAEMIA
     Dosage: 750 MG IVSS
     Route: 042
     Dates: start: 20140617

REACTIONS (4)
  - Infection [None]
  - Palpitations [None]
  - Rash [None]
  - Pruritus [None]
